FAERS Safety Report 7673747-1 (Version None)
Quarter: 2011Q3

REPORT INFORMATION
  Report Type: 
  Country: None (occurrence: None)
  Receive Date: 20110810
  Receipt Date: 20110310
  Transmission Date: 20111222
  Serious: No
  Sender: FDA-Public Use
  Company Number: US-BAYER-2011-022123

PATIENT
  Sex: Female

DRUGS (1)
  1. YAZ [Suspect]
     Route: 048

REACTIONS (4)
  - NO ADVERSE EVENT [None]
  - MENORRHAGIA [None]
  - POLYMENORRHOEA [None]
  - DYSMENORRHOEA [None]
